FAERS Safety Report 10455575 (Version 1)
Quarter: 2014Q3

REPORT INFORMATION
  Report Type: Spontaneous
  Country: US (occurrence: None)
  Receive Date: 20140915
  Receipt Date: 20140915
  Transmission Date: 20150326
  Serious: Yes (Hospitalization)
  Sender: FDA-Public Use
  Company Number: None

PATIENT
  Age: 34 Year
  Sex: Male
  Weight: 95 kg

DRUGS (1)
  1. ANTABUSE [Suspect]
     Active Substance: DISULFIRAM

REACTIONS (1)
  - Liver injury [None]

NARRATIVE: CASE EVENT DATE: 20140908
